FAERS Safety Report 4297668-X (Version None)
Quarter: 2004Q1

REPORT INFORMATION
  Report Type: 
  Country: None (occurrence: None)
  Receive Date: 20040213
  Receipt Date: 20040206
  Transmission Date: 20041129
  Serious: Yes (Other)
  Sender: FDA-Public Use
  Company Number: 2004-02-0385

PATIENT
  Sex: Female

DRUGS (1)
  1. NEOCLARITYN (DESLORATADINE) [Suspect]
     Indication: ASTHMA
     Dosage: ORAL
     Route: 048

REACTIONS (1)
  - THROMBOCYTOPENIA [None]
